FAERS Safety Report 21199774 (Version 1)
Quarter: 2022Q3

REPORT INFORMATION
  Report Type: Spontaneous
  Country: JP (occurrence: JP)
  Receive Date: 20220811
  Receipt Date: 20220811
  Transmission Date: 20221026
  Serious: Yes (Other)
  Sender: FDA-Public Use
  Company Number: JP-TAKEDA-2022TUS053904

PATIENT

DRUGS (1)
  1. LIALDA [Suspect]
     Active Substance: MESALAMINE
     Indication: Colitis ulcerative
     Route: 048

REACTIONS (6)
  - Pneumonia [Recovered/Resolved]
  - Pancreatitis [Recovered/Resolved]
  - Renal disorder [Unknown]
  - Chest pain [Recovered/Resolved]
  - Liver disorder [Recovered/Resolved]
  - Drug intolerance [Unknown]
